FAERS Safety Report 6074925-8 (Version None)
Quarter: 2009Q1

REPORT INFORMATION
  Report Type: 
  Country: None (occurrence: None)
  Receive Date: 20090210
  Receipt Date: 20090126
  Transmission Date: 20090719
  Serious: Yes (Life-Threatening, Hospitalization, Other)
  Sender: FDA-Public Use
  Company Number: A-NJ2008-22332

PATIENT
  Age: 67 Year
  Sex: Female
  Weight: 74.8 kg

DRUGS (12)
  1. TRACLEER [Suspect]
     Indication: PULMONARY ARTERIAL HYPERTENSION
     Dosage: 125 MG, BID, ORAL, 62.5 MG, BID, ORAL, 62.5 MG, BID, ORAL,125 MG, BID, ORAL
     Route: 048
     Dates: start: 20080724, end: 20080823
  2. TRACLEER [Suspect]
     Indication: PULMONARY ARTERIAL HYPERTENSION
     Dosage: 125 MG, BID, ORAL, 62.5 MG, BID, ORAL, 62.5 MG, BID, ORAL,125 MG, BID, ORAL
     Route: 048
     Dates: start: 20080824, end: 20081010
  3. TRACLEER [Suspect]
     Indication: PULMONARY ARTERIAL HYPERTENSION
     Dosage: 125 MG, BID, ORAL, 62.5 MG, BID, ORAL, 62.5 MG, BID, ORAL,125 MG, BID, ORAL
     Route: 048
     Dates: start: 20081114, end: 20081213
  4. TRACLEER [Suspect]
     Indication: PULMONARY ARTERIAL HYPERTENSION
     Dosage: 125 MG, BID, ORAL, 62.5 MG, BID, ORAL, 62.5 MG, BID, ORAL,125 MG, BID, ORAL
     Route: 048
     Dates: start: 20081214
  5. CELEXA [Concomitant]
  6. LASIX [Concomitant]
  7. POTASSIUM (POTASSIUM) [Concomitant]
  8. XANAX [Concomitant]
  9. TRAMADOL HCL [Concomitant]
  10. OXYCODONE HCL [Concomitant]
  11. LYRICA [Concomitant]
  12. COUMADIN [Concomitant]

REACTIONS (3)
  - CELLULITIS [None]
  - CONDITION AGGRAVATED [None]
  - PANCYTOPENIA [None]
